FAERS Safety Report 9601951 (Version 1)
Quarter: 2013Q4

REPORT INFORMATION
  Report Type: Spontaneous
  Country: US (occurrence: None)
  Receive Date: 20131004
  Receipt Date: 20131004
  Transmission Date: 20140711
  Serious: Yes (Hospitalization)
  Sender: FDA-Public Use
  Company Number: None

PATIENT
  Age: 79 Year
  Sex: Male
  Weight: 63.2 kg

DRUGS (11)
  1. XARELTO [Suspect]
     Indication: ATRIAL FIBRILLATION
     Dosage: 1 TAB WITH DINNER
     Route: 048
     Dates: start: 20120813, end: 20130930
  2. ALBUTEROL [Concomitant]
  3. AMOXICILLIN-CLAVULANATE [Concomitant]
  4. ASPIRIN [Concomitant]
  5. COLESTIPOL [Concomitant]
  6. CYANOCOBALAMIN [Concomitant]
  7. FOLIC ACID [Concomitant]
  8. PREDNISONE [Concomitant]
  9. RIVAROXABAN [Concomitant]
  10. SOTALOL [Concomitant]
  11. TIOTROPIUM [Concomitant]

REACTIONS (2)
  - Chronic obstructive pulmonary disease [None]
  - Intra-abdominal haematoma [None]
